FAERS Safety Report 7070980-7 (Version None)
Quarter: 2010Q4

REPORT INFORMATION
  Report Type: 
  Country: None (occurrence: None)
  Receive Date: 20101029
  Receipt Date: 20101021
  Transmission Date: 20110411
  Serious: Yes (Hospitalization, Other)
  Sender: FDA-Public Use
  Company Number: JP-BRISTOL-MYERS SQUIBB COMPANY-14901961

PATIENT
  Age: 62 Year
  Sex: Male

DRUGS (7)
  1. MITOMYCIN [Suspect]
     Indication: HEPATIC NEOPLASM MALIGNANT
     Dosage: FORM: INJECTION, STRENGTH: 2MG.
     Route: 013
     Dates: start: 20061108, end: 20090930
  2. FARMORUBICIN [Suspect]
     Indication: HEPATIC NEOPLASM MALIGNANT
     Route: 013
     Dates: start: 20000816
  3. LIPIODOL [Suspect]
     Indication: HEPATIC NEOPLASM MALIGNANT
     Dosage: ULTRA FLUIDE.
     Route: 013
     Dates: start: 20000816
  4. TAMSULOSIN HCL [Concomitant]
     Route: 048
     Dates: start: 20061204
  5. GLYBURIDE [Concomitant]
     Route: 048
     Dates: start: 20070615
  6. URSODIOL [Concomitant]
     Route: 048
     Dates: start: 20080414
  7. AMLODIPINE [Concomitant]
     Route: 048
     Dates: start: 20080804

REACTIONS (4)
  - DIABETES MELLITUS [None]
  - DIARRHOEA [None]
  - HEPATIC FUNCTION ABNORMAL [None]
  - INTERSTITIAL LUNG DISEASE [None]
